FAERS Safety Report 19330255 (Version 5)
Quarter: 2022Q2

REPORT INFORMATION
  Report Type: Report from Study
  Country: CO (occurrence: CO)
  Receive Date: 20210528
  Receipt Date: 20220521
  Transmission Date: 20220720
  Serious: Yes (Hospitalization, Other)
  Sender: FDA-Public Use
  Company Number: NVSC2021CO117914

PATIENT
  Age: 52 Year
  Sex: Female
  Weight: 46 kg

DRUGS (7)
  1. COSENTYX [Suspect]
     Active Substance: SECUKINUMAB
     Indication: Psoriasis
     Dosage: 150 MG, QMO
     Route: 058
     Dates: start: 20210503
  2. COSENTYX [Suspect]
     Active Substance: SECUKINUMAB
     Dosage: 300 MG, QMO
     Route: 058
  3. COSENTYX [Suspect]
     Active Substance: SECUKINUMAB
     Dosage: 300 MG, QW (FOR A MONTH)
     Route: 058
     Dates: start: 20210612
  4. OMEPRAZOLE [Concomitant]
     Active Substance: OMEPRAZOLE
     Indication: Gastritis prophylaxis
     Dosage: UNK, Q24H
     Route: 065
  5. LORATADINE [Concomitant]
     Active Substance: LORATADINE
     Indication: Hypersensitivity
     Dosage: 10 MG, Q24H
     Route: 048
     Dates: start: 20210428
  6. ALBUTEROL [Concomitant]
     Active Substance: ALBUTEROL
     Indication: Asthma
     Dosage: 1 UNK (1 PUFF, 6 TIMES A DAY)
     Route: 055
     Dates: start: 20210520
  7. IPRATROPIUM BROMIDE [Concomitant]
     Active Substance: IPRATROPIUM BROMIDE
     Indication: Asthma
     Dosage: 4 UNK (4 PUFF, 6 TIMES A DAY)
     Route: 055
     Dates: start: 20210520

REACTIONS (25)
  - Abdominal pain [Unknown]
  - Pyrexia [Recovered/Resolved]
  - Throat irritation [Recovered/Resolved]
  - Haemoglobin decreased [Recovered/Resolved]
  - Haematocrit decreased [Recovered/Resolved]
  - White blood cell count decreased [Recovered/Resolved]
  - Platelet count decreased [Recovered/Resolved]
  - Blood creatinine decreased [Recovered/Resolved]
  - Blood iron decreased [Recovered/Resolved]
  - Serum ferritin decreased [Recovered/Resolved]
  - Venous thrombosis [Recovered/Resolved]
  - Streptococcal infection [Recovered/Resolved]
  - Device related bacteraemia [Unknown]
  - Finger deformity [Unknown]
  - Movement disorder [Unknown]
  - Pain in extremity [Not Recovered/Not Resolved]
  - Psoriasis [Not Recovered/Not Resolved]
  - Skin plaque [Unknown]
  - Blood alkaline phosphatase increased [Unknown]
  - Gamma-glutamyltransferase increased [Unknown]
  - Arthralgia [Not Recovered/Not Resolved]
  - Dermatitis allergic [Unknown]
  - Pruritus [Unknown]
  - Irritable bowel syndrome [Unknown]
  - Haematoma [Unknown]

NARRATIVE: CASE EVENT DATE: 20210504
